FAERS Safety Report 6878652 (Version 1)
Quarter: 2020Q3

REPORT INFORMATION
  Report Type: Spontaneous
  Country: ES (occurrence: ES)
  Receive Date: 20090112
  Receipt Date: 20090112
  Transmission Date: 20201104
  Serious: Yes (Hospitalization)
  Sender: FDA-Public Use
  Company Number: ES-ROCHE-606062

PATIENT
  Age: 61 Year
  Sex: Female

DRUGS (4)
  1. TARCEVA [Interacting]
     Active Substance: ERLOTINIB HYDROCHLORIDE
     Dosage: FORMULATION REPORTED AS FILM COATED TABLETS
     Route: 048
     Dates: start: 200809
  2. UNSPECIFIED INGREDIENT [Interacting]
     Active Substance: UNSPECIFIED INGREDIENT
     Indication: PRODUCT USED FOR UNKNOWN INDICATION
     Dosage: DRUG REPORTED AS NON?STEROIDAL ANTI?INFLAMMATORIES ,TYPE 2
     Route: 048
  3. IBANDRONIC ACID. [Suspect]
     Active Substance: IBANDRONIC ACID
     Dosage: FORMULATION REPORTED AS FILM COATED TABLETS
     Route: 048
     Dates: start: 200809
  4. DEXAMETHASONE. [Interacting]
     Active Substance: DEXAMETHASONE
     Indication: PRODUCT USED FOR UNKNOWN INDICATION
     Route: 048
     Dates: start: 200806

REACTIONS (4)
  - Diarrhoea [Recovered/Resolved]
  - Drug interaction [None]
  - Haematemesis [Unknown]
  - Epistaxis [Unknown]

NARRATIVE: CASE EVENT DATE: 20080101
